FAERS Safety Report 5127568-4 (Version None)
Quarter: 2006Q4

REPORT INFORMATION
  Report Type: 
  Country: None (occurrence: None)
  Receive Date: 20061010
  Receipt Date: 20060925
  Transmission Date: 20070319
  Serious: Yes (Hospitalization)
  Sender: FDA-Public Use
  Company Number: 2006111154

PATIENT
  Age: 66 Year
  Sex: Male

DRUGS (5)
  1. ATARAX [Suspect]
     Dosage: 150 MG (25 MG, 6 IN 1 D) ORAL
     Route: 048
  2. LOXAPINE [Suspect]
     Dosage: 60 MG (60 MG, 1 IN 1 D) ORAL
     Route: 048
  3. OLANZAPINE [Suspect]
     Dosage: 40 MG (20 MG, 2 IN 1 D) ORAL
     Route: 048
  4. TIAPRIDE (TIAPRIDE) [Suspect]
     Dosage: 90 MG (30 MG, 3 IN 1 D) ORAL
     Route: 048
  5. MACROGOL [Concomitant]

REACTIONS (3)
  - INTESTINAL OBSTRUCTION [None]
  - IRRITABILITY [None]
  - VOLVULUS [None]
